FAERS Safety Report 11091408 (Version 1)
Quarter: 2015Q2

REPORT INFORMATION
  Report Type: Spontaneous
  Country: CN (occurrence: CN)
  Receive Date: 20150505
  Receipt Date: 20150505
  Transmission Date: 20150821
  Serious: Yes (Death)
  Sender: FDA-Public Use
  Company Number: CN-PFIZER INC-2015148444

PATIENT
  Age: 56 Year
  Sex: Male

DRUGS (1)
  1. XALKORI [Suspect]
     Active Substance: CRIZOTINIB
     Indication: LUNG NEOPLASM MALIGNANT
     Dosage: 250 MG, 2X/DAY

REACTIONS (4)
  - Disease progression [Fatal]
  - Lung infection [Fatal]
  - Lung neoplasm malignant [Fatal]
  - Pleural effusion [Fatal]

NARRATIVE: CASE EVENT DATE: 20150327
